FAERS Safety Report 17270453 (Version 1)
Quarter: 2020Q1

REPORT INFORMATION
  Report Type: Report from Study
  Country: CO (occurrence: CO)
  Receive Date: 20200114
  Receipt Date: 20200114
  Transmission Date: 20200409
  Serious: Yes (Disabling, Other)
  Sender: FDA-Public Use
  Company Number: CO-JNJFOC-20191135968

PATIENT
  Sex: Male
  Weight: 75 kg

DRUGS (1)
  1. STELARA [Suspect]
     Active Substance: USTEKINUMAB
     Indication: PSORIASIS
     Route: 058
     Dates: start: 20140121

REACTIONS (4)
  - Product dose omission [Unknown]
  - Meningitis [Unknown]
  - Psoriasis [Unknown]
  - Intellectual disability [Unknown]
